FAERS Safety Report 9441301 (Version 1)
Quarter: 2013Q3

REPORT INFORMATION
  Report Type: Spontaneous
  Country: US (occurrence: US)
  Receive Date: 20130805
  Receipt Date: 20130805
  Transmission Date: 20140515
  Serious: Yes (Other)
  Sender: FDA-Public Use
  Company Number: US-DYAX CORP.-2013DX000143

PATIENT
  Age: 37 Year
  Sex: Female

DRUGS (4)
  1. KALBITOR [Suspect]
     Indication: HEREDITARY ANGIOEDEMA
     Route: 058
     Dates: start: 20130725, end: 20130725
  2. KALBITOR [Suspect]
     Route: 058
     Dates: start: 20130617, end: 20130617
  3. KALBITOR [Suspect]
     Route: 058
  4. CINRYZE [Concomitant]
     Indication: HEREDITARY ANGIOEDEMA
     Route: 042

REACTIONS (1)
  - Hypersensitivity [Recovering/Resolving]
